FAERS Safety Report 8020048-8 (Version None)
Quarter: 2012Q1

REPORT INFORMATION
  Report Type: 
  Country: None (occurrence: None)
  Receive Date: 20120103
  Receipt Date: 20111227
  Transmission Date: 20120608
  Serious: Yes (Other)
  Sender: FDA-Public Use
  Company Number: US-TEVA-315153USA

PATIENT
  Sex: Male

DRUGS (11)
  1. LEUCOVORIN CALCIUM [Suspect]
     Indication: COLON CANCER
     Dosage: EVERY CYCLE
     Route: 042
     Dates: start: 20110506, end: 20110506
  2. FLUOROURACIL [Suspect]
     Dosage: EVERY CYCLE
     Route: 041
     Dates: start: 20110615, end: 20110615
  3. BEVACIZUMAB [Suspect]
     Indication: COLON CANCER
     Dosage: EVERY CYCLE
     Route: 042
     Dates: start: 20110506, end: 20110506
  4. FLUOROURACIL [Suspect]
     Indication: COLON CANCER
     Dosage: EVERY CYCLE
     Route: 041
     Dates: start: 20110506, end: 20110506
  5. LEUCOVORIN CALCIUM [Suspect]
     Dosage: EVERY CYCLE
     Route: 042
     Dates: start: 20110615, end: 20110615
  6. OXALIPLATIN [Suspect]
     Indication: COLON CANCER
     Dosage: EVERY CYCLE
     Route: 041
     Dates: start: 20110506, end: 20110506
  7. OXALIPLATIN [Suspect]
     Dosage: EVERY CYCLE
     Route: 041
     Dates: start: 20110615, end: 20110615
  8. FLUOROURACIL [Suspect]
     Dosage: EVERY CYCLE
     Route: 041
     Dates: start: 20110506, end: 20110615
  9. BEVACIZUMAB [Suspect]
     Dosage: EVERY CYCLE
     Route: 042
     Dates: start: 20110615, end: 20110615
  10. DEXAMETHASONE [Concomitant]
     Dates: start: 20110506, end: 20110615
  11. PALONOSETRON HYDROCHLORIDE [Concomitant]
     Dates: start: 20110518, end: 20110615

REACTIONS (1)
  - BLINDNESS TRANSIENT [None]
